FAERS Safety Report 24212870 (Version 2)
Quarter: 2024Q4

REPORT INFORMATION
  Report Type: Spontaneous
  Country: US (occurrence: US)
  Receive Date: 20240815
  Receipt Date: 20241028
  Transmission Date: 20250114
  Serious: No
  Sender: ALEXION PHARMACEUTICALS
  Company Number: 2024A174666

PATIENT

DRUGS (4)
  1. SYMBICORT [Suspect]
     Active Substance: BUDESONIDE\FORMOTEROL FUMARATE DIHYDRATE
     Dosage: 160, UNKNOWN, FREQUENCY: UNK
  2. SYMBICORT [Suspect]
     Active Substance: BUDESONIDE\FORMOTEROL FUMARATE DIHYDRATE
     Dosage: 160, UNKNOWN, FREQUENCY: UNK
  3. SYMBICORT [Suspect]
     Active Substance: BUDESONIDE\FORMOTEROL FUMARATE DIHYDRATE
     Dosage: 160, UNKNOWN, FREQUENCY: UNK
  4. SYMBICORT [Suspect]
     Active Substance: BUDESONIDE\FORMOTEROL FUMARATE DIHYDRATE
     Dosage: 160, UNKNOWN, FREQUENCY: UNK

REACTIONS (8)
  - Device malfunction [Unknown]
  - Product use issue [Unknown]
  - Device use issue [Unknown]
  - Wrong technique in device usage process [Unknown]
  - Product label confusion [Unknown]
  - Feeling of relaxation [Unknown]
  - Incorrect dose administered by device [Unknown]
  - Incorrect dose administered [Unknown]
